FAERS Safety Report 22083836 (Version 7)
Quarter: 2023Q2

REPORT INFORMATION
  Report Type: Report from Study
  Country: US (occurrence: US)
  Receive Date: 20230310
  Receipt Date: 20230512
  Transmission Date: 20230722
  Serious: Yes (Death, Hospitalization, Other)
  Sender: FDA-Public Use
  Company Number: US-002147023-NVSC2023US051109

PATIENT
  Age: 75 Year
  Sex: Female

DRUGS (3)
  1. PIQRAY [Suspect]
     Active Substance: ALPELISIB
     Indication: Breast cancer
     Dosage: 150 MG, QD
     Route: 048
     Dates: start: 202301
  2. PIQRAY [Suspect]
     Active Substance: ALPELISIB
     Dosage: 150 MG, BID
     Route: 048
     Dates: start: 20230109, end: 20230508
  3. PIQRAY [Suspect]
     Active Substance: ALPELISIB
     Dosage: 300 MG
     Route: 065
     Dates: start: 20230301

REACTIONS (7)
  - Death [Fatal]
  - Accident [Unknown]
  - Femur fracture [Unknown]
  - Hypersomnia [Recovering/Resolving]
  - Joint swelling [Unknown]
  - Fatigue [Recovering/Resolving]
  - Peripheral swelling [Unknown]

NARRATIVE: CASE EVENT DATE: 20230425
